FAERS Safety Report 19100507 (Version 1)
Quarter: 2021Q2

REPORT INFORMATION
  Report Type: Report from Study
  Country: JP (occurrence: JP)
  Receive Date: 20210407
  Receipt Date: 20210407
  Transmission Date: 20210717
  Serious: Yes (Hospitalization, Other)
  Sender: FDA-Public Use
  Company Number: JP-KYOWAKIRIN-2021AKK005038

PATIENT

DRUGS (28)
  1. CINAL [ASCORBIC ACID;CALCIUM PANTOTHENATE] [Concomitant]
     Indication: TROPICAL SPASTIC PARESIS
     Dosage: 2.5 MG, TID (INTERRUPTED ON SATURDAY AND SUNDAY)
     Route: 048
     Dates: start: 20201027
  2. LORATADINE. [Concomitant]
     Active Substance: LORATADINE
     Indication: RASH
     Dosage: 10 MG, QD
     Route: 048
     Dates: start: 20201223
  3. L?CARBOCISTEINE [Concomitant]
     Active Substance: CARBOCYSTEINE
     Indication: PNEUMONIA ASPIRATION
     Dosage: 500 MG, TID
     Route: 048
     Dates: start: 20201027
  4. MAGNESIUM OXIDE. [Concomitant]
     Active Substance: MAGNESIUM OXIDE
     Indication: CONSTIPATION
     Dosage: 500 MG, BID
     Route: 048
     Dates: start: 20201027
  5. MOHRUS [Concomitant]
     Active Substance: KETOPROFEN
     Indication: BACK PAIN
     Dosage: UNK, QD
  6. TAMSULOSIN HYDROCHLORIDE OD [Concomitant]
     Active Substance: TAMSULOSIN HYDROCHLORIDE
     Indication: DYSURIA
     Dosage: 0.2 MG, QD
     Route: 048
  7. TAKECAB [Concomitant]
     Active Substance: VONOPRAZAN FUMARATE
     Indication: GASTRIC ULCER
     Dosage: 20 MG, QD
     Route: 048
     Dates: start: 20201130
  8. MOGAMULIZUMAB [Suspect]
     Active Substance: MOGAMULIZUMAB
     Indication: TROPICAL SPASTIC PARESIS
     Dosage: 0.3 MG/KG, 1X/12 WEEKS
     Route: 042
     Dates: start: 20171011, end: 20200908
  9. MOHRUS [Concomitant]
     Active Substance: KETOPROFEN
     Indication: MUSCLE SPASTICITY
  10. MOHRUS [Concomitant]
     Active Substance: KETOPROFEN
     Indication: PAIN IN EXTREMITY
  11. TRAZENTA [Concomitant]
     Active Substance: LINAGLIPTIN
     Indication: DIABETES MELLITUS
     Dosage: 5 MG, QD
     Route: 048
     Dates: start: 20201130
  12. DUTASTERIDE. [Concomitant]
     Active Substance: DUTASTERIDE
     Indication: DYSURIA
     Dosage: 0.5 MG, QD
     Route: 048
     Dates: start: 20200331
  13. ANTEBATE [Concomitant]
     Active Substance: BETAMETHASONE DIPROPIONATE
     Indication: RASH
     Dosage: UNK, ONCE OR TWICE DAILY
     Route: 061
     Dates: start: 20200414
  14. STIBRON [Concomitant]
     Indication: RASH
     Dosage: UNK UNK, QD
     Route: 061
     Dates: start: 20190513
  15. SENNOSIDE A+B [Concomitant]
     Active Substance: SENNOSIDES A AND B
     Indication: CONSTIPATION
     Dosage: 24 MG, QD
     Route: 048
     Dates: start: 20201130
  16. SHAKUYAKUKANZOTO [Concomitant]
     Active Substance: HERBALS
     Indication: PAIN
     Dosage: 2.5 G, QD
     Route: 048
  17. HEPARINOID [Concomitant]
     Active Substance: CHONDROITIN SULFATE (BOVINE)
     Indication: RASH
     Dosage: UNK, ONCE OR TWICE DAILY
     Route: 061
     Dates: start: 20190924
  18. CALONAL [Concomitant]
     Active Substance: ACETAMINOPHEN
     Indication: PNEUMONIA ASPIRATION
     Dosage: 200 MG, TID
     Route: 048
     Dates: start: 20201027
  19. DAIKENCHUTO [Concomitant]
     Active Substance: HERBALS
     Indication: TISSUE ADHESION PROPHYLAXIS
     Dosage: 2.5 G, TID
     Route: 048
  20. BISOPROLOL FUMARATE. [Concomitant]
     Active Substance: BISOPROLOL FUMARATE
     Indication: PRINZMETAL ANGINA
     Dosage: 0.625 MG, QD
     Route: 048
     Dates: start: 20190513
  21. ANTEBATE [Concomitant]
     Active Substance: BETAMETHASONE DIPROPIONATE
     Indication: RASH
     Dosage: UNK, ONCE OR TWICE DAILY
     Route: 061
     Dates: start: 20200414
  22. ALENDRONATE SODIUM HYDRATE [Concomitant]
     Active Substance: ALENDRONATE SODIUM
     Indication: OSTEOPOROSIS
     Dosage: 35 MG, 1X/WEEK
     Route: 048
     Dates: start: 20201130
  23. MOHRUS [Concomitant]
     Active Substance: KETOPROFEN
     Indication: FRACTURE
  24. DISTIGMINE BROMIDE [Concomitant]
     Active Substance: DISTIGMINE BROMIDE
     Indication: DYSURIA
     Dosage: 5 MG, QD
     Route: 048
  25. NIZORAL [Concomitant]
     Active Substance: KETOCONAZOLE
     Indication: RASH
     Dosage: UNK UNK, QD
     Route: 061
     Dates: start: 20200804
  26. FYCOMPA [Concomitant]
     Active Substance: PERAMPANEL
     Indication: SEIZURE
     Dosage: 2 MG, QD
     Route: 048
     Dates: start: 20200908
  27. MITIGLINIDE CA OD [Concomitant]
     Active Substance: MITIGLINIDE CALCIUM ANHYDROUS
     Indication: DIABETES MELLITUS
     Dosage: 10 MG, TID
     Route: 048
     Dates: start: 20201027
  28. SPIRONOLACTONE. [Concomitant]
     Active Substance: SPIRONOLACTONE
     Indication: PNEUMONIA ASPIRATION
     Dosage: 25 MG, QD
     Route: 048
     Dates: start: 20201031

REACTIONS (1)
  - Embolic stroke [Not Recovered/Not Resolved]

NARRATIVE: CASE EVENT DATE: 20210323
